FAERS Safety Report 9135504 (Version 1)
Quarter: 2013Q1

REPORT INFORMATION
  Report Type: Spontaneous
  Country: US (occurrence: US)
  Receive Date: 20130219
  Receipt Date: 20130219
  Transmission Date: 20140127
  Serious: No
  Sender: FDA-Public Use
  Company Number: US-BRISTOL-MYERS SQUIBB COMPANY-16463523

PATIENT
  Age: 49 Year
  Sex: Female
  Weight: 72.56 kg

DRUGS (7)
  1. ORENCIA FOR INJ [Suspect]
     Route: 042
  2. METHOTREXATE [Concomitant]
  3. LEVOTHYROXINE [Concomitant]
  4. LISINOPRIL [Concomitant]
  5. MELOXICAM [Concomitant]
  6. FOLIC ACID [Concomitant]
  7. PREDNISONE [Concomitant]

REACTIONS (1)
  - Herpes zoster [Unknown]
